FAERS Safety Report 15203846 (Version 1)
Quarter: 2018Q3

REPORT INFORMATION
  Report Type: Spontaneous
  Country: IT (occurrence: IT)
  Receive Date: 20180726
  Receipt Date: 20180726
  Transmission Date: 20181010
  Serious: Yes (Life-Threatening, Other)
  Sender: FDA-Public Use
  Company Number: IT-GILEAD-2018-0351851

PATIENT
  Age: 48 Year
  Sex: Female
  Weight: 57 kg

DRUGS (1)
  1. ZYDELIG [Suspect]
     Active Substance: IDELALISIB
     Indication: LYMPHOMA
     Dosage: 300 MG, QD
     Route: 048
     Dates: start: 20180322, end: 20180614

REACTIONS (2)
  - Acute respiratory failure [Recovered/Resolved]
  - Pneumonitis [Recovered/Resolved]

NARRATIVE: CASE EVENT DATE: 20180615
